FAERS Safety Report 25444191 (Version 2)
Quarter: 2025Q4

REPORT INFORMATION
  Report Type: Spontaneous
  Country: US (occurrence: None)
  Receive Date: 20250617
  Receipt Date: 20251027
  Transmission Date: 20260118
  Serious: No
  Sender: UCB
  Company Number: US-UCBSA-2025020284

PATIENT
  Age: 59 Year
  Weight: 110.67 kg

DRUGS (1)
  1. BIMZELX [Suspect]
     Active Substance: BIMEKIZUMAB-BKZX
     Indication: Psoriatic arthropathy
     Dosage: 160 MILLIGRAM, EV 4 WEEKS

REACTIONS (4)
  - Ocular hyperaemia [Unknown]
  - Head discomfort [Unknown]
  - Headache [Unknown]
  - Drug ineffective [Unknown]
